FAERS Safety Report 14293494 (Version 1)
Quarter: 2017Q4

REPORT INFORMATION
  Report Type: Report from Study
  Country: TR (occurrence: TR)
  Receive Date: 20171215
  Receipt Date: 20171215
  Transmission Date: 20180321
  Serious: Yes (Life-Threatening, Hospitalization, Other)
  Sender: FDA-Public Use
  Company Number: TR-B.I. PHARMACEUTICALS,INC./RIDGEFIELD-2017-EV-000181

PATIENT
  Age: 79 Year
  Sex: Male

DRUGS (6)
  1. PRAMIPEXOLE. [Suspect]
     Active Substance: PRAMIPEXOLE
     Indication: DEMENTIA ALZHEIMER^S TYPE
     Route: 065
  2. LEVODOPA [Suspect]
     Active Substance: LEVODOPA
     Indication: DEMENTIA
  3. LEVODOPA [Suspect]
     Active Substance: LEVODOPA
     Indication: DEMENTIA ALZHEIMER^S TYPE
  4. LEVODOPA [Suspect]
     Active Substance: LEVODOPA
     Indication: PARKINSON^S DISEASE
     Route: 065
  5. PRAMIPEXOLE. [Suspect]
     Active Substance: PRAMIPEXOLE
     Indication: PARKINSON^S DISEASE
  6. PRAMIPEXOLE. [Suspect]
     Active Substance: PRAMIPEXOLE
     Indication: DEMENTIA

REACTIONS (2)
  - Neuroleptic malignant syndrome [Recovered/Resolved]
  - Withdrawal syndrome [Recovered/Resolved]
